FAERS Safety Report 4579790-3 (Version None)
Quarter: 2005Q1

REPORT INFORMATION
  Report Type: 
  Country: None (occurrence: None)
  Receive Date: 20050210
  Receipt Date: 20050128
  Transmission Date: 20050727
  Serious: Yes (Other)
  Sender: FDA-Public Use
  Company Number: 200411538

PATIENT
  Age: 52 Year
  Sex: Female

DRUGS (1)
  1. ALESION (EPINASTINE) [Suspect]
     Indication: EXANTHEM
     Dosage: 40 MG QD PO
     Route: 048
     Dates: start: 20041117, end: 20041117

REACTIONS (3)
  - BODY TEMPERATURE INCREASED [None]
  - DYSPNOEA [None]
  - HEART RATE INCREASED [None]
